FAERS Safety Report 5726128-1 (Version None)
Quarter: 2008Q2

REPORT INFORMATION
  Report Type: 
  Country: None (occurrence: None)
  Receive Date: 20080501
  Receipt Date: 20080501
  Transmission Date: 20081010
  Serious: Yes (Death)
  Sender: FDA-Public Use
  Company Number: None

PATIENT
  Sex: Male
  Weight: 77.1115 kg

DRUGS (2)
  1. DIGITEK TABS  .25 MG  AMIDE -BERTEK- [Suspect]
     Indication: CARDIAC DISORDER
     Dosage: 1 TABLET ALTERNATING TO 5 TAB DAILY PO
     Route: 048
     Dates: start: 20080101, end: 20080320
  2. DIGITEK TABS  .25 MG  AMIDE -BERTEK- [Suspect]
     Indication: CARDIAC FAILURE
     Dosage: 1 TABLET ALTERNATING TO 5 TAB DAILY PO
     Route: 048
     Dates: start: 20080101, end: 20080320

REACTIONS (7)
  - CARDIAC ARREST [None]
  - DIZZINESS [None]
  - MALAISE [None]
  - NAUSEA [None]
  - PHARMACEUTICAL PRODUCT COMPLAINT [None]
  - VISUAL DISTURBANCE [None]
  - VOMITING [None]
